FAERS Safety Report 7141720-8 (Version None)
Quarter: 2010Q4

REPORT INFORMATION
  Report Type: 
  Country: None (occurrence: None)
  Receive Date: 20101207
  Receipt Date: 20101125
  Transmission Date: 20110411
  Serious: Yes (Hospitalization)
  Sender: FDA-Public Use
  Company Number: FR-SANOFI-AVENTIS-2010SA071988

PATIENT
  Sex: Female

DRUGS (2)
  1. STILNOX [Suspect]
     Indication: INTENTIONAL OVERDOSE
     Route: 065
  2. MEPRONIZINE [Suspect]
     Indication: INTENTIONAL OVERDOSE
     Route: 065

REACTIONS (4)
  - CIRCULATORY COLLAPSE [None]
  - COMA [None]
  - INTENTIONAL OVERDOSE [None]
  - RHABDOMYOLYSIS [None]
